FAERS Safety Report 8824650 (Version 1)
Quarter: 2012Q4

REPORT INFORMATION
  Report Type: 
  Country: US (occurrence: US)
  Receive Date: 20121004
  Receipt Date: 20121004
  Transmission Date: 20130627
  Serious: Yes (Death, Hospitalization)
  Sender: FDA-Public Use
  Company Number: PHEH2012US019298

PATIENT
  Age: 66 Year
  Sex: Female
  Weight: 47 kg

DRUGS (7)
  1. AFINITOR [Suspect]
     Indication: BREAST CANCER
     Dosage: 10 mg, QD
     Route: 048
     Dates: start: 20120628, end: 20120906
  2. EXEMESTANE [Concomitant]
  3. NORPRAMIN [Concomitant]
  4. AMITRIPTYLINE [Concomitant]
  5. VAGIFEM [Concomitant]
     Dosage: Thrice a week
  6. NYSTATIN [Concomitant]
  7. TRIAMCINOLONE [Concomitant]
     Route: 061

REACTIONS (2)
  - Death [Fatal]
  - Dyspnoea [Not Recovered/Not Resolved]
